FAERS Safety Report 5588424-0 (Version None)
Quarter: 2008Q1

REPORT INFORMATION
  Report Type: 
  Country: None (occurrence: None)
  Receive Date: 20080111
  Receipt Date: 20080104
  Transmission Date: 20080703
  Serious: Yes (Hospitalization)
  Sender: FDA-Public Use
  Company Number: GB-ABBOTT-08P-167-0432443-00

PATIENT
  Sex: Female

DRUGS (15)
  1. HUMIRA [Suspect]
     Indication: RHEUMATOID ARTHRITIS
     Route: 058
     Dates: start: 20030301, end: 20071201
  2. HUMIRA [Concomitant]
     Indication: RHEUMATOID ARTHRITIS
     Route: 058
     Dates: start: 20031112
  3. ACETYLSALICYLIC ACID SRT [Concomitant]
     Indication: PROPHYLAXIS
     Dates: start: 20001101
  4. FOLIC ACID [Concomitant]
     Indication: PROPHYLAXIS
     Dates: start: 20010504
  5. LEKOVIT CA [Concomitant]
     Indication: OSTEOPOROSIS
     Dates: start: 20070226
  6. METHOTREXATE [Concomitant]
     Indication: RHEUMATOID ARTHRITIS
     Dates: start: 20010504, end: 20061203
  7. METHOTREXATE [Concomitant]
     Dates: start: 20061204, end: 20071017
  8. METHOTREXATE [Concomitant]
     Dates: start: 20071018
  9. ALENDRONATE SODIUM [Concomitant]
     Indication: OSTEOPOROSIS
  10. PARACETAMOL [Concomitant]
     Indication: PAIN
     Dates: start: 20080102
  11. PYRIDOSTIGMINE BROMIDE [Concomitant]
     Indication: MYASTHENIA GRAVIS
     Dates: start: 20071229
  12. ZOPICLONE [Concomitant]
     Indication: SEDATION
     Dates: start: 20080103
  13. ACETAMINOPHEN W/ CODEINE [Concomitant]
     Indication: PAIN
     Dates: start: 20071216, end: 20071220
  14. DOCUSATE [Concomitant]
     Indication: CONSTIPATION
     Dates: start: 20071220
  15. GAVISCON [Concomitant]
     Indication: DYSPEPSIA
     Dates: start: 20071222

REACTIONS (1)
  - SYNCOPE VASOVAGAL [None]
